FAERS Safety Report 9945989 (Version 2)
Quarter: 2014Q1

REPORT INFORMATION
  Report Type: Report from Study
  Country: FI (occurrence: FI)
  Receive Date: 20140303
  Receipt Date: 20140321
  Transmission Date: 20141002
  Serious: Yes (Other)
  Sender: FDA-Public Use
  Company Number: PHHY2014FI024584

PATIENT
  Age: 69 Year
  Sex: Female

DRUGS (2)
  1. LEPONEX [Suspect]
     Dosage: 75 MG, QD
     Dates: start: 20140124
  2. LEPONEX [Suspect]
     Dosage: 100 MG, DAILY (25 MG + 75 MG)
     Route: 048
     Dates: end: 20140224

REACTIONS (13)
  - Pyelonephritis [Recovered/Resolved]
  - C-reactive protein increased [Recovered/Resolved]
  - Pyrexia [Recovering/Resolving]
  - White blood cell count increased [Unknown]
  - Urinary tract infection [Recovering/Resolving]
  - Eosinophilia [Recovering/Resolving]
  - Sinus tachycardia [Not Recovered/Not Resolved]
  - Palpitations [Not Recovered/Not Resolved]
  - Heart rate increased [Unknown]
  - Platelet count increased [Unknown]
  - Electrocardiogram T wave inversion [Recovered/Resolved]
  - Thrombocytosis [Recovering/Resolving]
  - Fatigue [Recovered/Resolved]
